FAERS Safety Report 13835170 (Version 3)
Quarter: 2019Q2

REPORT INFORMATION
  Report Type: Spontaneous
  Country: US (occurrence: US)
  Receive Date: 20170804
  Receipt Date: 20190529
  Transmission Date: 20190711
  Serious: No
  Sender: FDA-Public Use
  Company Number: US-PFIZER INC-2017022170

PATIENT
  Age: 76 Year
  Sex: Male

DRUGS (11)
  1. LISINOPRIL. [Concomitant]
     Active Substance: LISINOPRIL
     Dosage: 10 MG, UNK
     Dates: start: 2012
  2. IBUPROFEN. [Concomitant]
     Active Substance: IBUPROFEN
     Indication: PAIN
     Dosage: 800 MG, AS NEEDED (AT BEDTIME)
     Dates: start: 2013
  3. PRISTIQ EXTENDED-RELEASE [Suspect]
     Active Substance: DESVENLAFAXINE SUCCINATE
     Indication: DEPRESSION
     Dosage: 100 MG, 1X/DAY
     Dates: start: 2013
  4. METOPROLOL TARTRAS [Concomitant]
     Dosage: 25 MG, UNK
     Dates: start: 1985
  5. ASPIRIN. [Concomitant]
     Active Substance: ASPIRIN
     Dosage: 325 MG, UNK
     Dates: start: 2013
  6. TRAMADOL HCL [Concomitant]
     Active Substance: TRAMADOL HYDROCHLORIDE
     Dosage: 50 MG, UNK
     Dates: start: 2014
  7. CALCIUM +D3 [Concomitant]
     Active Substance: CALCIUM\CHOLECALCIFEROL
     Dosage: UNK [CALCIUM 600MG, COLECALCIFEROL 800MG]
     Dates: start: 2015
  8. ZOLPIDEM [Concomitant]
     Active Substance: ZOLPIDEM\ZOLPIDEM TARTRATE
     Dosage: 10 MG, UNK
     Dates: start: 2013
  9. RAPAFLO [Concomitant]
     Active Substance: SILODOSIN
     Dosage: 8 MG, UNK
     Dates: start: 2017
  10. KLOR-CON M20 [Concomitant]
     Active Substance: POTASSIUM CHLORIDE
     Dosage: 20 MEQ, UNK
     Dates: start: 2012
  11. FUROSEMIDE. [Concomitant]
     Active Substance: FUROSEMIDE
     Dosage: 40 MG, UNK
     Dates: start: 1985

REACTIONS (2)
  - Irritability [Unknown]
  - Feeling abnormal [Unknown]
